FAERS Safety Report 17979012 (Version 3)
Quarter: 2021Q1

REPORT INFORMATION
  Report Type: Spontaneous
  Country: GB (occurrence: GB)
  Receive Date: 20200703
  Receipt Date: 20210203
  Transmission Date: 20210419
  Serious: Yes (Death, Other)
  Sender: FDA-Public Use
  Company Number: GB-PFIZER INC-2012085380

PATIENT
  Age: 22 Month
  Sex: Female
  Weight: 12.5 kg

DRUGS (1)
  1. PROPOFOL. [Suspect]
     Active Substance: PROPOFOL
     Indication: SEDATION
     Dosage: UNK (10 MG/KG/HOUR)

REACTIONS (6)
  - Bradycardia [Fatal]
  - Off label use [Fatal]
  - Cardiac arrest [Fatal]
  - Hyperlipidaemia [Unknown]
  - Metabolic acidosis [Unknown]
  - Cardiac failure [Fatal]
